FAERS Safety Report 6728350-4 (Version None)
Quarter: 2010Q2

REPORT INFORMATION
  Report Type: 
  Country: None (occurrence: None)
  Receive Date: 20100517
  Receipt Date: 20100507
  Transmission Date: 20101027
  Serious: Yes (Disabling)
  Sender: FDA-Public Use
  Company Number: FR-TEVA-234020ISR

PATIENT
  Sex: Male

DRUGS (6)
  1. AZILECT [Suspect]
     Indication: PARKINSON'S DISEASE
     Route: 048
     Dates: start: 20100419, end: 20100422
  2. STALEVO 100 [Concomitant]
     Route: 048
  3. PRAMIPEXOLE DIHYDROCHLORIDE [Concomitant]
     Route: 048
  4. MADOPAR [Concomitant]
     Route: 048
  5. TAMSULOSIN HCL [Concomitant]
     Route: 048
  6. LANSOPRAZOLE [Concomitant]
     Route: 048

REACTIONS (4)
  - ABDOMINAL PAIN [None]
  - BLADDER DISORDER [None]
  - RENAL COLIC [None]
  - RENAL PAIN [None]
